FAERS Safety Report 20373491 (Version 1)
Quarter: 2022Q1

REPORT INFORMATION
  Report Type: Report from Study
  Country: CA (occurrence: CA)
  Receive Date: 20220125
  Receipt Date: 20220125
  Transmission Date: 20220424
  Serious: Yes (Death)
  Sender: FDA-Public Use
  Company Number: CA-NOVARTISPH-NVSC2021CA052793

PATIENT
  Age: 84 Year
  Sex: Female

DRUGS (4)
  1. BEOVU [Suspect]
     Active Substance: BROLUCIZUMAB-DBLL
     Indication: Neovascular age-related macular degeneration
     Dosage: 0.05 ML (6MG/0.05ML)
     Route: 031
     Dates: start: 20210303
  2. BEOVU [Suspect]
     Active Substance: BROLUCIZUMAB-DBLL
     Dosage: UNK (OS)
     Route: 031
     Dates: start: 20211027
  3. LUCENTIS [Suspect]
     Active Substance: RANIBIZUMAB
     Indication: Neovascular age-related macular degeneration
     Dosage: 10 MG/ML (SYRINGE)
     Route: 031
     Dates: start: 20180415
  4. LUCENTIS [Suspect]
     Active Substance: RANIBIZUMAB
     Dosage: UNK (RIGHT EYE)
     Route: 031
     Dates: start: 20211027

REACTIONS (2)
  - Death [Fatal]
  - Vision blurred [Unknown]

NARRATIVE: CASE EVENT DATE: 20220113
